FAERS Safety Report 5928372-7 (Version None)
Quarter: 2008Q4

REPORT INFORMATION
  Report Type: 
  Country: None (occurrence: None)
  Receive Date: 20081023
  Receipt Date: 20081016
  Transmission Date: 20090506
  Serious: Yes (Other)
  Sender: FDA-Public Use
  Company Number: US-JNJCH-2008052290

PATIENT
  Age: 41 Year
  Sex: Female
  Weight: 63.5 kg

DRUGS (1)
  1. ZYRTEC [Suspect]
     Indication: BRONCHIAL IRRITATION
     Dosage: TEXT:ONE TABLET DAILY
     Route: 048
     Dates: start: 20080901, end: 20081014

REACTIONS (6)
  - MUSCLE TWITCHING [None]
  - NAUSEA [None]
  - NIGHT SWEATS [None]
  - OFF LABEL USE [None]
  - TREMOR [None]
  - WITHDRAWAL SYNDROME [None]
